FAERS Safety Report 7720644-9 (Version None)
Quarter: 2011Q3

REPORT INFORMATION
  Report Type: 
  Country: None (occurrence: None)
  Receive Date: 20110831
  Receipt Date: 20110822
  Transmission Date: 20111222
  Serious: Yes (Hospitalization, Other)
  Sender: FDA-Public Use
  Company Number: PHEH2006US14747

PATIENT
  Sex: Female

DRUGS (19)
  1. ZOMETA [Suspect]
     Dates: start: 20040101
  2. CHEMOTHERAPEUTICS NOS [Suspect]
     Indication: BREAST CANCER METASTATIC
  3. LIPITOR [Concomitant]
     Dosage: 10 MG, 1 A DAY
  4. PAXIL [Concomitant]
     Dosage: 10 MG, QD
  5. NADOLOL [Concomitant]
  6. TEMAZEPAM [Concomitant]
  7. AROMASIN [Concomitant]
  8. AMBIEN [Concomitant]
     Dosage: 25 MG,  1 A DAY
  9. ATIVAN [Concomitant]
     Dosage: 0.5 MG, QD
     Dates: start: 20060101
  10. PREMARIN [Concomitant]
     Dosage: 6.25 G, QD
  11. FERROUS SULFATE TAB [Concomitant]
  12. CALCIUM CARBONATE [Concomitant]
  13. VITAMIN B6 [Concomitant]
  14. GLUCOSAMINE [Concomitant]
  15. LISINOPRIL [Concomitant]
  16. PAROXETINE HCL [Concomitant]
  17. FEMARA [Concomitant]
  18. TRIAMTERENE [Concomitant]
     Dosage: 37.5 MG, QD
  19. VALTREX [Concomitant]
     Dosage: 500 MG, QD
     Dates: start: 20070601

REACTIONS (51)
  - ERYTHEMA [None]
  - HYPERTENSION [None]
  - TYPE 2 DIABETES MELLITUS [None]
  - CHRONIC OBSTRUCTIVE PULMONARY DISEASE [None]
  - OSTEOPOROSIS [None]
  - HEPATIC STEATOSIS [None]
  - INTERVERTEBRAL DISC PROTRUSION [None]
  - VOMITING [None]
  - URINARY INCONTINENCE [None]
  - EXOSTOSIS [None]
  - METASTASES TO MENINGES [None]
  - METASTASES TO LIVER [None]
  - HEPATIC LESION [None]
  - GALLBLADDER DISORDER [None]
  - HERPES SIMPLEX [None]
  - SPINAL COMPRESSION FRACTURE [None]
  - SPINAL COLUMN STENOSIS [None]
  - GAIT DISTURBANCE [None]
  - STEVENS-JOHNSON SYNDROME [None]
  - DECREASED INTEREST [None]
  - METASTASES TO BONE [None]
  - RENAL CYST [None]
  - NEOPLASM MALIGNANT [None]
  - EXPOSED BONE IN JAW [None]
  - BACK PAIN [None]
  - ARTERIOSCLEROSIS CORONARY ARTERY [None]
  - PAIN [None]
  - ANXIETY [None]
  - RHEUMATOID ARTHRITIS [None]
  - CHOLELITHIASIS [None]
  - BILE DUCT CANCER [None]
  - BILIARY DILATATION [None]
  - TAENIASIS [None]
  - BREAST CANCER METASTATIC [None]
  - GENERAL PHYSICAL HEALTH DETERIORATION [None]
  - LYMPHADENITIS [None]
  - MOUTH ULCERATION [None]
  - LUNG HYPERINFLATION [None]
  - ARTHROPATHY [None]
  - PARANOIA [None]
  - OSTEONECROSIS OF JAW [None]
  - HYPERLIPIDAEMIA [None]
  - FISTULA DISCHARGE [None]
  - GINGIVAL DISORDER [None]
  - DRY MOUTH [None]
  - OSTEOPENIA [None]
  - LYMPHADENOPATHY [None]
  - OBESITY [None]
  - HYPOAESTHESIA [None]
  - LUNG NEOPLASM [None]
  - SWELLING FACE [None]
